FAERS Safety Report 17477380 (Version 1)
Quarter: 2020Q1

REPORT INFORMATION
  Report Type: Spontaneous
  Country: CN (occurrence: CN)
  Receive Date: 20200229
  Receipt Date: 20200229
  Transmission Date: 20200409
  Serious: Yes (Other)
  Sender: FDA-Public Use
  Company Number: CN-JNJFOC-20200234956

PATIENT

DRUGS (1)
  1. CHILDRENS MOTRIN [Suspect]
     Active Substance: IBUPROFEN
     Indication: PATENT DUCTUS ARTERIOSUS
     Dosage: THE TWO GROUPS GIVEN ORAL IBUPROFEN. THE FIRST DOSE WAS 10 MG/KG, THEN RE-ADMINISTER WITH 5 MG/KG AT
     Route: 048

REACTIONS (10)
  - Gastrointestinal injury [Unknown]
  - Cardiovascular disorder [Unknown]
  - Off label use [Unknown]
  - Platelet count abnormal [Unknown]
  - Haemorrhage intracranial [Unknown]
  - Hypoglycaemia [Unknown]
  - Product use in unapproved indication [Unknown]
  - Adverse event [Unknown]
  - Renal impairment [Unknown]
  - Jaundice [Unknown]
